FAERS Safety Report 11456587 (Version 2)
Quarter: 2015Q4

REPORT INFORMATION
  Report Type: Report from Study
  Country: AU (occurrence: AU)
  Receive Date: 20150903
  Receipt Date: 20151028
  Transmission Date: 20160304
  Serious: Yes (Hospitalization)
  Sender: FDA-Public Use
  Company Number: AU-ABBVIE-15P-008-1456024-00

PATIENT
  Age: 59 Year
  Sex: Male

DRUGS (1)
  1. DUODOPA [Suspect]
     Active Substance: CARBIDOPA\LEVODOPA
     Indication: PARKINSON^S DISEASE
     Dosage: CONTINUOUS INFUSION
     Route: 065
     Dates: start: 20140120

REACTIONS (4)
  - Weight decreased [Unknown]
  - Fall [Unknown]
  - Head injury [Unknown]
  - Social problem [Unknown]

NARRATIVE: CASE EVENT DATE: 20150830
